FAERS Safety Report 15302561 (Version 2)
Quarter: 2018Q3

REPORT INFORMATION
  Report Type: Spontaneous
  Country: DE (occurrence: DE)
  Receive Date: 20180821
  Receipt Date: 20180917
  Transmission Date: 20181010
  Serious: Yes (Other)
  Sender: FDA-Public Use
  Company Number: PHHY2018DE073219

PATIENT
  Sex: Male
  Weight: 68 kg

DRUGS (15)
  1. DEXAMETHASONE. [Suspect]
     Active Substance: DEXAMETHASONE
     Indication: PLASMA CELL MYELOMA
     Dosage: 20 MG, UNK
     Route: 065
  2. HYDROMORPHON RATIOPHARM [Concomitant]
     Indication: PAIN
     Dosage: 2.31 MG, PRN
     Route: 065
  3. ZOMETA [Concomitant]
     Active Substance: ZOLEDRONIC ACID
     Indication: PROPHYLAXIS
     Dosage: 4 MG, QMO
     Route: 065
     Dates: start: 20161006
  4. INNOHEP [Concomitant]
     Active Substance: TINZAPARIN SODIUM
     Indication: PRODUCT USED FOR UNKNOWN INDICATION
     Dosage: UNK
     Route: 065
  5. UNACID [Concomitant]
     Indication: PRODUCT USED FOR UNKNOWN INDICATION
     Dosage: UNK
     Route: 065
  6. CARFILZOMIB [Suspect]
     Active Substance: CARFILZOMIB
     Dosage: 56 MG/M2, UNK
     Route: 042
     Dates: start: 20180524
  7. FUROSEMID RATIOPHARM [Concomitant]
     Indication: PRODUCT USED FOR UNKNOWN INDICATION
     Dosage: 20 MG, UNK
     Route: 065
  8. PREGABALIN. [Concomitant]
     Active Substance: PREGABALIN
     Indication: PAIN
     Dosage: 50 MG, BID
     Route: 065
  9. PANTOPRAZOL BETA [Concomitant]
     Indication: PROPHYLAXIS
     Dosage: 40 MG, QD
     Route: 065
  10. HYDROMORPHONHYDROCHLORID BETA [Concomitant]
     Indication: PAIN
     Dosage: 8 MG, BID
     Route: 065
     Dates: start: 2016
  11. DEXAMETHASONE. [Suspect]
     Active Substance: DEXAMETHASONE
     Dosage: 40 MG, UNK
     Route: 065
  12. TORASEMID BETA [Concomitant]
     Indication: DYSPNOEA
     Dosage: 10 MG, TID
     Route: 065
     Dates: start: 20180601
  13. CARFILZOMIB [Suspect]
     Active Substance: CARFILZOMIB
     Indication: PLASMA CELL MYELOMA
     Dosage: 20 MG/M2, UNK
     Route: 042
     Dates: start: 20180516, end: 20180517
  14. RAMIPRIL BETA [Concomitant]
     Active Substance: RAMIPRIL
     Indication: HYPERTONIA
     Dosage: 2.5 MG, TID
     Route: 065
     Dates: end: 201805
  15. KALINOR [Concomitant]
     Indication: PRODUCT USED FOR UNKNOWN INDICATION
     Dosage: UNK, THREE TIMES PER DAY AND DAILY
     Route: 065

REACTIONS (4)
  - Neutropenia [Recovered/Resolved]
  - Blood creatinine increased [Recovered/Resolved]
  - Dyspnoea [Recovered/Resolved]
  - Cardiac failure [Recovered/Resolved]

NARRATIVE: CASE EVENT DATE: 20180611
